FAERS Safety Report 7803266-0 (Version None)
Quarter: 2011Q4

REPORT INFORMATION
  Report Type: 
  Country: None (occurrence: None)
  Receive Date: 20111005
  Receipt Date: 20110920
  Transmission Date: 20120403
  Serious: Yes (Hospitalization, Other)
  Sender: FDA-Public Use
  Company Number: CIP11001744

PATIENT
  Sex: Female

DRUGS (16)
  1. CYCLOBENZAPRINE [Concomitant]
  2. FLOUCONAZOLE (FLUCONAZOLE) [Concomitant]
  3. DOC-Q-LACE (DOCUSATE SODIUM) [Concomitant]
  4. OXYCODONE HCL [Concomitant]
  5. FEXOFENADINE HCL [Concomitant]
  6. FOSAMAX [Suspect]
     Indication: OSTEOPOROSIS
     Dosage: 70 MG, ORAL
     Route: 048
     Dates: start: 19990630, end: 20100614
  7. PREMARIN /0073001/ (ESTROGENS CONJUGATED) [Concomitant]
  8. ACTONEL [Suspect]
     Dosage: 35MG, ORAL
     Route: 048
     Dates: start: 20060407
  9. MOBIC [Concomitant]
  10. CLINDAMYCIN [Concomitant]
  11. MAXALT  /01406501/ (RIZATRIPTAN) [Concomitant]
  12. ALENDRONATE SODIUM [Suspect]
     Dosage: ORAL
     Route: 048
     Dates: start: 20080422, end: 20100527
  13. AUGMENTIN /00756801/ (AMOXICILLIN SODIUM, CLAVULANATE POTASSIUM) [Concomitant]
  14. BONIVA [Suspect]
     Dosage: ORAL
     Route: 048
  15. FOSAMAX PLUS D [Suspect]
     Dosage: 70 MG, ORAL; 10 MG DAILY, ORAL
     Route: 048
     Dates: start: 20071115, end: 20080421
  16. FOSAMAX PLUS D [Suspect]
     Dosage: 70 MG, ORAL; 10 MG DAILY, ORAL
     Route: 048
     Dates: start: 19980810

REACTIONS (6)
  - LIMB DEFORMITY [None]
  - FEMUR FRACTURE [None]
  - PATHOLOGICAL FRACTURE [None]
  - OEDEMA PERIPHERAL [None]
  - STRESS FRACTURE [None]
  - FALL [None]
